FAERS Safety Report 20697170 (Version 1)
Quarter: 2022Q2

REPORT INFORMATION
  Report Type: Other
  Country: CA (occurrence: CA)
  Receive Date: 20220411
  Receipt Date: 20220411
  Transmission Date: 20220721
  Serious: Yes (Congenital Anomaly)
  Sender: FDA-Public Use
  Company Number: CA-PFIZER INC-202200499315

PATIENT

DRUGS (6)
  1. DOCETAXEL [Suspect]
     Active Substance: DOCETAXEL
     Indication: Breast cancer
     Dosage: UNK
     Route: 064
  2. DOXORUBICIN HYDROCHLORIDE [Suspect]
     Active Substance: DOXORUBICIN HYDROCHLORIDE
     Indication: Breast cancer
     Dosage: UNK
     Route: 064
  3. EPIRUBICIN HYDROCHLORIDE [Suspect]
     Active Substance: EPIRUBICIN HYDROCHLORIDE
     Indication: Exposure during pregnancy
     Dosage: UNK
     Route: 064
  4. FLUOROURACIL [Suspect]
     Active Substance: FLUOROURACIL
     Indication: Breast cancer
     Dosage: UNK
     Route: 064
  5. TRASTUZUMAB [Suspect]
     Active Substance: TRASTUZUMAB
     Indication: Breast cancer
     Dosage: UNK
     Route: 064
  6. CYCLOPHOSPHAMIDE [Suspect]
     Active Substance: CYCLOPHOSPHAMIDE
     Indication: Breast cancer
     Dosage: UNK
     Route: 064

REACTIONS (9)
  - Maternal exposure during pregnancy [Unknown]
  - Asthma [Unknown]
  - Dermatitis atopic [Unknown]
  - Eczema [Unknown]
  - Hypersensitivity [Unknown]
  - Infection [Unknown]
  - Oral candidiasis [Unknown]
  - Premature baby [Unknown]
  - Social (pragmatic) communication disorder [Unknown]
